FAERS Safety Report 7654191-X (Version None)
Quarter: 2011Q3

REPORT INFORMATION
  Report Type: 
  Country: None (occurrence: None)
  Receive Date: 20110803
  Receipt Date: 20110726
  Transmission Date: 20111222
  Serious: Yes (Other)
  Sender: FDA-Public Use
  Company Number: JP-ROCHE-784739

PATIENT
  Sex: Female

DRUGS (6)
  1. PREDNISOLONE [Concomitant]
     Dosage: NOTE: DOSAGE IS UNCERTAIN
     Route: 048
  2. AZULFIDINE [Concomitant]
     Route: 048
  3. GLAKAY [Concomitant]
     Dosage: NOTE: DOSAGE IS UNCERTAIN
     Route: 048
  4. ALFAROL [Concomitant]
     Dosage: NOTE: DOSAGE IS UNCERTAIN
     Route: 048
  5. TOCILIZUMAB [Suspect]
     Indication: RHEUMATOID ARTHRITIS
     Route: 042
     Dates: start: 20090130, end: 20101126
  6. LANSOPRAZOLE [Concomitant]
     Dosage: NOTE: DOSAGE IS UNCERTAIN
     Route: 048

REACTIONS (1)
  - RENAL FAILURE CHRONIC [None]
